FAERS Safety Report 6027450-4 (Version None)
Quarter: 2009Q1

REPORT INFORMATION
  Report Type: 
  Country: None (occurrence: None)
  Receive Date: 20090105
  Receipt Date: 20081223
  Transmission Date: 20090719
  Serious: Yes (Disabling)
  Sender: FDA-Public Use
  Company Number: JP-SANOFI-SYNTHELABO-A01200816547

PATIENT
  Sex: Female

DRUGS (4)
  1. ELPLAT [Suspect]
     Indication: COLON CANCER METASTATIC
     Dosage: UNK
     Route: 041
     Dates: start: 20080526, end: 20080526
  2. CALCIUM LEVOFOLINATE [Suspect]
     Dosage: UNK
     Route: 041
     Dates: start: 20080527, end: 20080527
  3. FLUOROURACIL [Suspect]
     Dosage: UNK
     Route: 042
     Dates: start: 20080527, end: 20080527
  4. AVASTIN [Suspect]
     Dosage: 5 MG/KG
     Route: 041
     Dates: start: 20080526, end: 20080526

REACTIONS (2)
  - SKIN EROSION [None]
  - ULCER [None]
